FAERS Safety Report 10441442 (Version 1)
Quarter: 2014Q3

REPORT INFORMATION
  Report Type: Spontaneous
  Country: AR (occurrence: AR)
  Receive Date: 20140909
  Receipt Date: 20140909
  Transmission Date: 20150326
  Serious: Yes (Other)
  Sender: FDA-Public Use
  Company Number: AR-PFIZER INC-2014249639

PATIENT
  Age: 9 Year
  Sex: Male

DRUGS (1)
  1. GENOTROPIN [Suspect]
     Active Substance: SOMATROPIN
     Indication: BLOOD GROWTH HORMONE DECREASED
     Dosage: 0.6 TO 1 MG DAILY
     Dates: start: 20110501, end: 20140825

REACTIONS (4)
  - Hallucination [Not Recovered/Not Resolved]
  - Partial seizures [Not Recovered/Not Resolved]
  - Pyrexia [Not Recovered/Not Resolved]
  - Incoherent [Not Recovered/Not Resolved]

NARRATIVE: CASE EVENT DATE: 20140825
